FAERS Safety Report 22366791 (Version 1)
Quarter: 2023Q2

REPORT INFORMATION
  Report Type: Spontaneous
  Country: CN (occurrence: CN)
  Receive Date: 20230525
  Receipt Date: 20230525
  Transmission Date: 20230721
  Serious: Yes (Hospitalization, Other)
  Sender: FDA-Public Use
  Company Number: CN-PFIZER INC-PV202300090471

PATIENT
  Age: 48 Year
  Sex: Male
  Weight: 82 kg

DRUGS (28)
  1. CYTARABINE [Suspect]
     Active Substance: CYTARABINE
     Indication: Mantle cell lymphoma
     Dosage: 0.347 G, 1X/DAY
     Route: 041
     Dates: start: 20230323, end: 20230326
  2. CYTARABINE [Suspect]
     Active Substance: CYTARABINE
     Indication: Autologous haematopoietic stem cell transplant
  3. CYTARABINE [Suspect]
     Active Substance: CYTARABINE
     Indication: Myelosuppression
  4. CYTARABINE [Suspect]
     Active Substance: CYTARABINE
     Indication: Chemotherapy
  5. CYTARABINE [Suspect]
     Active Substance: CYTARABINE
     Indication: Mouth ulceration
  6. CYTARABINE [Suspect]
     Active Substance: CYTARABINE
     Indication: Pulmonary tuberculosis
  7. CYTARABINE [Suspect]
     Active Substance: CYTARABINE
     Indication: Hyperuricaemia
  8. ETOPOSIDE [Suspect]
     Active Substance: ETOPOSIDE
     Indication: Mantle cell lymphoma
     Dosage: 0.1 G, 3X/DAY
     Route: 041
     Dates: start: 20230323, end: 20230326
  9. ETOPOSIDE [Suspect]
     Active Substance: ETOPOSIDE
     Indication: Autologous haematopoietic stem cell transplant
     Dosage: 0.047 G, 1X/DAY
     Route: 041
     Dates: start: 20230323, end: 20230326
  10. ETOPOSIDE [Suspect]
     Active Substance: ETOPOSIDE
     Indication: Myelosuppression
  11. ETOPOSIDE [Suspect]
     Active Substance: ETOPOSIDE
     Indication: Chemotherapy
  12. ETOPOSIDE [Suspect]
     Active Substance: ETOPOSIDE
     Indication: Mouth ulceration
  13. ETOPOSIDE [Suspect]
     Active Substance: ETOPOSIDE
     Indication: Pulmonary tuberculosis
  14. ETOPOSIDE [Suspect]
     Active Substance: ETOPOSIDE
     Indication: Hyperuricaemia
  15. SODIUM CHLORIDE [Concomitant]
     Active Substance: SODIUM CHLORIDE
     Indication: Mantle cell lymphoma
     Dosage: 400 ML, 3X/DAY
     Route: 041
     Dates: start: 20230323, end: 20230326
  16. SODIUM CHLORIDE [Concomitant]
     Active Substance: SODIUM CHLORIDE
     Indication: Autologous haematopoietic stem cell transplant
  17. SODIUM CHLORIDE [Concomitant]
     Active Substance: SODIUM CHLORIDE
     Indication: Myelosuppression
  18. SODIUM CHLORIDE [Concomitant]
     Active Substance: SODIUM CHLORIDE
     Indication: Chemotherapy
  19. SODIUM CHLORIDE [Concomitant]
     Active Substance: SODIUM CHLORIDE
     Indication: Mouth ulceration
  20. SODIUM CHLORIDE [Concomitant]
     Active Substance: SODIUM CHLORIDE
     Indication: Pulmonary tuberculosis
  21. SODIUM CHLORIDE [Concomitant]
     Active Substance: SODIUM CHLORIDE
     Indication: Hyperuricaemia
  22. SODIUM CHLORIDE [Concomitant]
     Active Substance: SODIUM CHLORIDE
     Indication: Mantle cell lymphoma
     Dosage: 250 ML, 1X/DAY
     Route: 041
     Dates: start: 20230323, end: 20230326
  23. SODIUM CHLORIDE [Concomitant]
     Active Substance: SODIUM CHLORIDE
     Indication: Autologous haematopoietic stem cell transplant
     Dosage: 200 ML, 1X/DAY
     Route: 041
     Dates: start: 20230323, end: 20230326
  24. SODIUM CHLORIDE [Concomitant]
     Active Substance: SODIUM CHLORIDE
     Indication: Myelosuppression
  25. SODIUM CHLORIDE [Concomitant]
     Active Substance: SODIUM CHLORIDE
     Indication: Chemotherapy
  26. SODIUM CHLORIDE [Concomitant]
     Active Substance: SODIUM CHLORIDE
     Indication: Mouth ulceration
  27. SODIUM CHLORIDE [Concomitant]
     Active Substance: SODIUM CHLORIDE
     Indication: Pulmonary tuberculosis
  28. SODIUM CHLORIDE [Concomitant]
     Active Substance: SODIUM CHLORIDE
     Indication: Hyperuricaemia

REACTIONS (3)
  - Thrombocytopenia [Recovered/Resolved]
  - White blood cell count decreased [Recovered/Resolved]
  - Off label use [Unknown]

NARRATIVE: CASE EVENT DATE: 20230323
